FAERS Safety Report 14957529 (Version 1)
Quarter: 2018Q2

REPORT INFORMATION
  Report Type: Report from Study
  Country: US (occurrence: US)
  Receive Date: 20180531
  Receipt Date: 20180531
  Transmission Date: 20180711
  Serious: No
  Sender: FDA-Public Use
  Company Number: US-ROCHE-2129289

PATIENT
  Age: 53 Year
  Sex: Female

DRUGS (2)
  1. OCREVUS [Suspect]
     Active Substance: OCRELIZUMAB
     Route: 042
  2. OCREVUS [Suspect]
     Active Substance: OCRELIZUMAB
     Indication: MULTIPLE SCLEROSIS
     Route: 042
     Dates: start: 20180510

REACTIONS (9)
  - Dyspnoea [Recovered/Resolved]
  - Fungal infection [Unknown]
  - Peripheral swelling [Unknown]
  - Pruritus [Unknown]
  - Oral pruritus [Unknown]
  - Tremor [Recovered/Resolved]
  - Nasal pruritus [Unknown]
  - Cough [Unknown]
  - Palpitations [Recovered/Resolved]

NARRATIVE: CASE EVENT DATE: 20180510
